FAERS Safety Report 24856042 (Version 1)
Quarter: 2025Q1

REPORT INFORMATION
  Report Type: Spontaneous
  Country: CN (occurrence: CN)
  Receive Date: 20250117
  Receipt Date: 20250117
  Transmission Date: 20250408
  Serious: Yes (Life-Threatening, Hospitalization, Other)
  Sender: Kenvue
  Company Number: CN-MLMSERVICE-20250106-PI330684-00029-2

PATIENT

DRUGS (1)
  1. ACETAMINOPHEN [Suspect]
     Active Substance: ACETAMINOPHEN
     Indication: Pyrexia
     Route: 048

REACTIONS (5)
  - Toxic epidermal necrolysis [Recovered/Resolved]
  - Ulcerative keratitis [Recovered/Resolved]
  - Symblepharon [Recovered/Resolved]
  - Herpes simplex [Recovered/Resolved]
  - Mycoplasma infection [Recovered/Resolved]
